FAERS Safety Report 20594963 (Version 1)
Quarter: 2022Q1

REPORT INFORMATION
  Report Type: Spontaneous
  Country: IT (occurrence: IT)
  Receive Date: 20220315
  Receipt Date: 20220315
  Transmission Date: 20220423
  Serious: Yes (Other)
  Sender: FDA-Public Use
  Company Number: IT-MLMSERVICE-20220223-3390505-1

PATIENT
  Age: 51 Year
  Sex: Male

DRUGS (7)
  1. TACROLIMUS [Suspect]
     Active Substance: TACROLIMUS
     Indication: Product used for unknown indication
     Dosage: 23 MILLIGRAM, OD
     Route: 065
     Dates: start: 2019
  2. MYCOPHENOLATE MOFETIL [Concomitant]
     Active Substance: MYCOPHENOLATE MOFETIL
     Indication: Product used for unknown indication
     Dosage: 1 GRAM, OD
     Route: 065
     Dates: start: 2019
  3. PREDNISONE [Concomitant]
     Active Substance: PREDNISONE
     Indication: Transplant rejection
     Dosage: 30 MILLIGRAM, QD
     Route: 042
     Dates: start: 202004, end: 2020
  4. PREDNISONE [Concomitant]
     Active Substance: PREDNISONE
     Dosage: 10 MILLIGRAM, QD
     Route: 042
     Dates: start: 2020, end: 202006
  5. PREDNISONE [Concomitant]
     Active Substance: PREDNISONE
     Dosage: 15 MILLIGRAM, QD
     Route: 042
     Dates: start: 2020, end: 2020
  6. PREDNISONE [Concomitant]
     Active Substance: PREDNISONE
     Dosage: 25 MILLIGRAM, QD
     Route: 042
     Dates: start: 2020, end: 2020
  7. PREDNISONE [Concomitant]
     Active Substance: PREDNISONE
     Dosage: 20 MILLIGRAM, QD
     Route: 042
     Dates: start: 2020, end: 2020

REACTIONS (5)
  - Nystagmus [Recovered/Resolved]
  - Vestibular disorder [Recovered/Resolved]
  - Nervous system disorder [Recovered/Resolved]
  - Hypomagnesaemia [Recovered/Resolved]
  - Deafness neurosensory [Recovered/Resolved]

NARRATIVE: CASE EVENT DATE: 20200601
